FAERS Safety Report 8134957-2 (Version None)
Quarter: 2012Q1

REPORT INFORMATION
  Report Type: 
  Country: None (occurrence: None)
  Receive Date: 20120214
  Receipt Date: 20120210
  Transmission Date: 20120608
  Serious: No
  Sender: FDA-Public Use
  Company Number: US-JNJFOC-20120108630

PATIENT
  Sex: Female
  Weight: 85.73 kg

DRUGS (6)
  1. FLEXERIL [Concomitant]
  2. VALACYCLOVIR [Concomitant]
  3. METHOTREXATE [Concomitant]
     Indication: RHEUMATOID ARTHRITIS
  4. TRAMADOL HCL [Concomitant]
  5. ELAVIL [Concomitant]
  6. REMICADE [Suspect]
     Indication: RHEUMATOID ARTHRITIS
     Dosage: 500 MG EVERY 5 TO 6 WEEKS
     Route: 042
     Dates: start: 20080901, end: 20111228

REACTIONS (1)
  - MYCOBACTERIUM AVIUM COMPLEX INFECTION [None]
